FAERS Safety Report 17957617 (Version 1)
Quarter: 2020Q2

REPORT INFORMATION
  Report Type: Spontaneous
  Country: ES (occurrence: ES)
  Receive Date: 20200629
  Receipt Date: 20200629
  Transmission Date: 20200714
  Serious: Yes (Hospitalization, Other)
  Sender: FDA-Public Use
  Company Number: ES-NOVOPROD-735192

PATIENT
  Age: 14 Year
  Sex: Male

DRUGS (3)
  1. NOVOSEVEN [Suspect]
     Active Substance: COAGULATION FACTOR VIIA RECOMBINANT HUMAN
     Indication: PROPHYLAXIS
     Dosage: 10 MG EVERY 2HR FOR 2HRS
     Route: 065
     Dates: end: 20191128
  2. NOVOSEVEN [Suspect]
     Active Substance: COAGULATION FACTOR VIIA RECOMBINANT HUMAN
     Indication: FACTOR IX DEFICIENCY
     Dosage: 15 MG, QD (220 ?/KG).)
     Route: 065
  3. NOVOSEVEN [Suspect]
     Active Substance: COAGULATION FACTOR VIIA RECOMBINANT HUMAN
     Dosage: 15 MG, QD
     Route: 065
     Dates: start: 20200317

REACTIONS (15)
  - Haemarthrosis [Unknown]
  - Haematoma muscle [Unknown]
  - Haemarthrosis [Unknown]
  - Anaemia [Unknown]
  - Haemarthrosis [Unknown]
  - Haemarthrosis [Unknown]
  - Subcapsular renal haematoma [Unknown]
  - Haematoma [Unknown]
  - Haemarthrosis [Unknown]
  - Haematoma [Unknown]
  - Haemarthrosis [Unknown]
  - Muscle haemorrhage [Unknown]
  - Haematoma muscle [Unknown]
  - Muscle haemorrhage [Unknown]
  - Off label use [Unknown]

NARRATIVE: CASE EVENT DATE: 20100606
